FAERS Safety Report 9679403 (Version 1)
Quarter: 2013Q4

REPORT INFORMATION
  Report Type: Spontaneous
  Country: US (occurrence: US)
  Receive Date: 20131109
  Receipt Date: 20131109
  Transmission Date: 20140711
  Serious: No
  Sender: FDA-Public Use
  Company Number: US-SANOFI-AVENTIS-2013SA040909

PATIENT
  Age: 30 Year
  Sex: Female

DRUGS (4)
  1. ALLEGRA-D, 24 HR [Suspect]
     Indication: RESPIRATORY TRACT CONGESTION
     Route: 048
     Dates: start: 201303
  2. ALLEGRA-D, 24 HR [Suspect]
     Indication: HYPERSENSITIVITY
     Route: 048
     Dates: start: 201303
  3. ALLEGRA-D, 24 HR [Suspect]
     Indication: RESPIRATORY TRACT CONGESTION
     Route: 048
  4. ALLEGRA-D, 24 HR [Suspect]
     Indication: HYPERSENSITIVITY
     Route: 048

REACTIONS (1)
  - Extra dose administered [Unknown]
